FAERS Safety Report 24333658 (Version 1)
Quarter: 2024Q3

REPORT INFORMATION
  Report Type: Spontaneous
  Country: IT (occurrence: IT)
  Receive Date: 20240918
  Receipt Date: 20240918
  Transmission Date: 20241016
  Serious: Yes (Other)
  Sender: GUERBET
  Company Number: None

PATIENT
  Age: 60 Year
  Sex: Male

DRUGS (5)
  1. LIPIODOL [Suspect]
     Active Substance: ETHIODIZED OIL
     Indication: Transcatheter arterial chemoembolisation
     Dosage: 5 TO 10 ML OF LIPIODOL MIXED WITH EPIRUBICIN HYDROCHLORIDE.
     Route: 013
  2. EPIRUBICIN HYDROCHLORIDE [Suspect]
     Active Substance: EPIRUBICIN HYDROCHLORIDE
     Indication: Transcatheter arterial chemoembolisation
     Dosage: 5 TO 10 ML OF LIPIODOL MIXED WITH EPIRUBICIN HYDROCHLORIDE.
     Route: 013
  3. IOPAMIDOL [Suspect]
     Active Substance: IOPAMIDOL
     Indication: Transcatheter arterial chemoembolisation
     Dosage: 2-4 ML.
     Route: 013
  4. GELATIN [Suspect]
     Active Substance: GELATIN
     Indication: Embolism
     Route: 013
  5. GELATIN [Suspect]
     Active Substance: GELATIN
     Indication: Transcatheter arterial chemoembolisation
     Route: 065

REACTIONS (1)
  - Hepatic artery stenosis [Unknown]
